FAERS Safety Report 15952283 (Version 3)
Quarter: 2020Q2

REPORT INFORMATION
  Report Type: Spontaneous
  Country: US (occurrence: US)
  Receive Date: 20190212
  Receipt Date: 20200514
  Transmission Date: 20200713
  Serious: No
  Sender: FDA-Public Use
  Company Number: US-SA-2019SA038166

PATIENT
  Age: 18 Year
  Sex: Male

DRUGS (1)
  1. DUPIXENT [Suspect]
     Active Substance: DUPILUMAB
     Indication: DERMATITIS ATOPIC
     Dosage: 300 MG, QOW
     Route: 058
     Dates: start: 20190213

REACTIONS (3)
  - Dermatitis atopic [Recovered/Resolved]
  - Depressed mood [Not Recovered/Not Resolved]
  - Depression [Not Recovered/Not Resolved]
